FAERS Safety Report 20775666 (Version 1)
Quarter: 2022Q2

REPORT INFORMATION
  Report Type: Spontaneous
  Country: CN (occurrence: CN)
  Receive Date: 20220502
  Receipt Date: 20220502
  Transmission Date: 20220721
  Serious: Yes (Hospitalization, Other)
  Sender: FDA-Public Use
  Company Number: CN-009507513-2205CHN000206

PATIENT
  Age: 54 Year
  Sex: Female
  Weight: 49 kg

DRUGS (2)
  1. STEGLATRO [Suspect]
     Active Substance: ERTUGLIFLOZIN PIDOLATE
     Indication: Diabetes mellitus
     Dosage: 5 MG, FREQUENCY: QD
     Route: 048
     Dates: start: 20220414, end: 20220419
  2. SITAGLIPTIN PHOSPHATE [Suspect]
     Active Substance: SITAGLIPTIN PHOSPHATE
     Indication: Diabetes mellitus
     Dosage: 100 MG, FREQUENCY: QD
     Route: 048
     Dates: start: 20220414, end: 20220419

REACTIONS (2)
  - Diabetic ketoacidosis [Recovered/Resolved]
  - Diabetic neuropathy [Unknown]

NARRATIVE: CASE EVENT DATE: 20220401
